FAERS Safety Report 4280057-1 (Version None)
Quarter: 2004Q1

REPORT INFORMATION
  Report Type: 
  Country: None (occurrence: None)
  Receive Date: 20040126
  Receipt Date: 20040108
  Transmission Date: 20041129
  Serious: Yes (Hospitalization, Other)
  Sender: FDA-Public Use
  Company Number: 2003033328

PATIENT
  Age: 59 Year
  Sex: Female

DRUGS (6)
  1. ZELDOX (CAPSULES) ZIPRASIDONE [Suspect]
     Indication: SCHIZOAFFECTIVE DISORDER
     Dosage: 30 MG, ORAL
     Route: 048
     Dates: start: 20030415, end: 20030618
  2. ESOMEPRAZOLE [Concomitant]
  3. SALUTEC (HYDROCHLOROTHIAZIDE, RAMIPRIL) [Concomitant]
  4. LEVOTHYROXINE SODIUM [Concomitant]
  5. PHENPROCOUMON [Concomitant]
  6. FLUPENTIXOL DIHYDROCHLORIDE (FLUPENTIXOL DIHYDROCHLORIDE) [Concomitant]

REACTIONS (5)
  - CONVULSION [None]
  - FALL [None]
  - FEELING ABNORMAL [None]
  - HIP FRACTURE [None]
  - HUMERUS FRACTURE [None]
